FAERS Safety Report 7256302-7 (Version None)
Quarter: 2011Q1

REPORT INFORMATION
  Report Type: 
  Country: None (occurrence: None)
  Receive Date: 20110129
  Receipt Date: 20100603
  Transmission Date: 20110831
  Serious: No
  Sender: FDA-Public Use
  Company Number: US-ABBOTT-10P-163-0649021-00

PATIENT
  Sex: Female
  Weight: 79.45 kg

DRUGS (11)
  1. ALBUTEROL [Concomitant]
     Indication: ASTHMA
  2. LASIX [Concomitant]
     Indication: OEDEMA PERIPHERAL
  3. IMITREX [Concomitant]
     Indication: MIGRAINE
  4. TRAMADOL HCL [Concomitant]
     Indication: PAIN IN EXTREMITY
  5. HUMIRA [Suspect]
     Indication: CROHN'S DISEASE
     Dates: start: 20100520, end: 20100602
  6. NEURONTIN [Concomitant]
     Indication: PAIN IN EXTREMITY
  7. FLEXERIL [Concomitant]
     Indication: PAIN IN EXTREMITY
  8. FIORICET [Concomitant]
     Indication: MIGRAINE
  9. PENTAZA [Concomitant]
     Indication: CROHN'S DISEASE
  10. LISINOPRIL [Concomitant]
     Indication: HYPERTENSION
  11. NEXIUM [Concomitant]
     Indication: GASTROOESOPHAGEAL REFLUX DISEASE

REACTIONS (5)
  - RASH [None]
  - SINUSITIS [None]
  - EAR DISCOMFORT [None]
  - PYREXIA [None]
  - DYSPNOEA [None]
